FAERS Safety Report 9217810 (Version 5)
Quarter: 2014Q4

REPORT INFORMATION
  Report Type: Spontaneous
  Country: US (occurrence: US)
  Receive Date: 20130408
  Receipt Date: 20141203
  Transmission Date: 20150529
  Serious: No
  Sender: FDA-Public Use
  Company Number: US-009507513-1304USA002743

PATIENT
  Sex: Male
  Weight: 89.84 kg

DRUGS (2)
  1. PROSCAR [Suspect]
     Active Substance: FINASTERIDE
     Dosage: 5 MG, UNK
     Route: 048
     Dates: start: 20000911, end: 20011108
  2. PROPECIA [Suspect]
     Active Substance: FINASTERIDE
     Indication: ANDROGENETIC ALOPECIA
     Dosage: 1 MG, UNK
     Route: 048
     Dates: start: 1999, end: 201003

REACTIONS (13)
  - Blood testosterone decreased [Unknown]
  - Acne [Unknown]
  - Sinus disorder [Recovered/Resolved]
  - Scoliosis [Unknown]
  - Gastrooesophageal reflux disease [Unknown]
  - Attention deficit/hyperactivity disorder [Unknown]
  - Genital herpes simplex [Unknown]
  - Testicular disorder [Unknown]
  - Libido decreased [Not Recovered/Not Resolved]
  - Ejaculation disorder [Not Recovered/Not Resolved]
  - Erectile dysfunction [Not Recovered/Not Resolved]
  - Electrocardiogram T wave inversion [Unknown]
  - Sexual dysfunction [Unknown]

NARRATIVE: CASE EVENT DATE: 2000
